FAERS Safety Report 23648365 (Version 1)
Quarter: 2024Q1

REPORT INFORMATION
  Report Type: Spontaneous
  Country: US (occurrence: None)
  Receive Date: 20240318
  Receipt Date: 20240318
  Transmission Date: 20240410
  Serious: Yes (Death)
  Sender: FDA-Public Use
  Company Number: None

PATIENT
  Age: 43 Year
  Sex: Male

DRUGS (4)
  1. EVEROLIMUS [Suspect]
     Active Substance: EVEROLIMUS
     Indication: Renal transplant
     Dosage: 0.5MG BID ORAL?
     Route: 048
     Dates: start: 202307, end: 20240307
  2. EVEROLIMUS [Suspect]
     Active Substance: EVEROLIMUS
     Indication: Heart transplant
  3. PROGRAF [Suspect]
     Active Substance: TACROLIMUS
     Indication: Renal transplant
     Dosage: 0.2MG BID ORAL
     Dates: start: 202401, end: 202403
  4. PROGRAF [Suspect]
     Active Substance: TACROLIMUS
     Indication: Heart transplant

REACTIONS (1)
  - Death [None]

NARRATIVE: CASE EVENT DATE: 20240307
